FAERS Safety Report 4461309-9 (Version None)
Quarter: 2004Q3

REPORT INFORMATION
  Report Type: 
  Country: None (occurrence: None)
  Receive Date: 20040928
  Receipt Date: 20040916
  Transmission Date: 20050211
  Serious: Yes (Other)
  Sender: FDA-Public Use
  Company Number: JP-GLAXOSMITHKLINE-B0345977A

PATIENT
  Age: 68 Year
  Sex: Female
  Weight: 39 kg

DRUGS (4)
  1. ZANTAC [Suspect]
     Indication: GASTROENTERITIS
     Dosage: 75MG TWICE PER DAY
     Route: 048
     Dates: start: 20040809, end: 20040826
  2. GASMOTIN [Suspect]
     Indication: GASTROENTERITIS
     Dosage: 1TAB THREE TIMES PER DAY
     Route: 048
     Dates: start: 20040809, end: 20040826
  3. DEPAS [Suspect]
     Indication: MUSCLE TIGHTNESS
     Dosage: .5MG PER DAY
     Route: 048
  4. CYANOCOBALAMIN [Concomitant]
     Indication: SPINAL COLUMN STENOSIS
     Dosage: 1TAB THREE TIMES PER DAY
     Route: 048

REACTIONS (5)
  - ANOREXIA [None]
  - FATIGUE [None]
  - HAEMORRHAGE [None]
  - HAEMORRHAGE SUBCUTANEOUS [None]
  - RASH [None]
